FAERS Safety Report 5108099-4 (Version None)
Quarter: 2006Q3

REPORT INFORMATION
  Report Type: 
  Country: None (occurrence: None)
  Receive Date: 20060919
  Receipt Date: 20060825
  Transmission Date: 20061208
  Serious: Yes (Life-Threatening, Hospitalization)
  Sender: FDA-Public Use
  Company Number: DE-BAYER-200611119BVD

PATIENT
  Age: 45 Year
  Sex: Male
  Weight: 70 kg

DRUGS (6)
  1. SORAFENIB OR PLACEBO [Suspect]
     Indication: HEPATIC NEOPLASM MALIGNANT
     Route: 048
     Dates: start: 20050712, end: 20050907
  2. SORAFENIB OR PLACEBO [Suspect]
     Route: 048
     Dates: start: 20050908
  3. IMUREK [Concomitant]
     Route: 011
     Dates: start: 19730101
  4. PROTAPHANE [Concomitant]
     Route: 058
     Dates: start: 19920101
  5. LEXOTANIL [Concomitant]
     Route: 048
     Dates: start: 20051025
  6. BELOC ZOK [Concomitant]
     Route: 048
     Dates: start: 20060420

REACTIONS (2)
  - MYOCARDIAL INFARCTION [None]
  - MYOCARDIAL ISCHAEMIA [None]
